FAERS Safety Report 5755235-2 (Version None)
Quarter: 2008Q2

REPORT INFORMATION
  Report Type: 
  Country: None (occurrence: None)
  Receive Date: 20080528
  Receipt Date: 20080515
  Transmission Date: 20081010
  Serious: Yes (Hospitalization)
  Sender: FDA-Public Use
  Company Number: 028121

PATIENT
  Age: 20 Year
  Sex: Male

DRUGS (2)
  1. CLARAVIS [Suspect]
     Indication: ACNE
     Dosage: 30 MG/DAY,; 40 MG/DAY,
  2. CLARAVIS [Suspect]
     Indication: ACNE
     Dosage: 30 MG/DAY,; 40 MG/DAY,

REACTIONS (4)
  - ARTHRALGIA [None]
  - DEMYELINATING POLYNEUROPATHY [None]
  - GAIT DISTURBANCE [None]
  - SACROILIITIS [None]
